FAERS Safety Report 8592486 (Version 2)
Quarter: 2012Q4

REPORT INFORMATION
  Report Type: 
  Country: US (occurrence: US)
  Receive Date: 20120601
  Receipt Date: 20121126
  Transmission Date: 20130627
  Serious: Yes (Other)
  Sender: FDA-Public Use
  Company Number: US-ASTRAZENECA-2012SE25138

PATIENT
  Age: 62 Year
  Sex: Female

DRUGS (3)
  1. ATACAND HCT [Suspect]
     Dosage: 16/12.5 MG, UNKNOWN
     Route: 048
  2. ATACAND HCT [Suspect]
     Dosage: 16/12.5 MG, 1 TABLET DAILY
     Route: 048
  3. BLOOD PRESSURE MEDICATION [Concomitant]
     Indication: HYPERTENSION

REACTIONS (5)
  - Visual impairment [Unknown]
  - Cerebrovascular accident [Unknown]
  - Blood pressure increased [Unknown]
  - Drug dose omission [Unknown]
  - Intentional drug misuse [Unknown]
